FAERS Safety Report 8830829 (Version 1)
Quarter: 2012Q4

REPORT INFORMATION
  Report Type: 
  Country: US (occurrence: US)
  Receive Date: 20121009
  Receipt Date: 20121009
  Transmission Date: 20130627
  Serious: Yes (Other)
  Sender: FDA-Public Use
  Company Number: US-MYLANLABS-2012S1020304

PATIENT
  Age: 33 Year
  Sex: Female

DRUGS (8)
  1. TRAMADOL [Suspect]
     Indication: NEURALGIA
     Dosage: 300-400 mg/day (prescribed)
     Route: 065
  2. TRAMADOL [Interacting]
     Indication: NEURALGIA
     Dosage: 600-800 mg/day (self-medicated)
     Route: 065
  3. VENLAFAXINE [Interacting]
     Indication: DEPRESSION
     Dosage: Titrated to 300 mg/day
     Route: 065
  4. SERTRALINE [Interacting]
     Indication: DEPRESSION
     Dosage: 50 mg/day
     Route: 065
  5. LAMOTRIGINE [Concomitant]
     Indication: EPILEPSY
     Dosage: 200 mg/day
     Route: 065
  6. LAMOTRIGINE [Concomitant]
     Indication: EPILEPSY
     Dosage: 300 mg/day
     Route: 065
  7. OXCARBAZEPINE [Concomitant]
     Indication: EPILEPSY
     Route: 065
  8. PHENYTOIN [Concomitant]
     Indication: EPILEPSY
     Dosage: 200 mg/day
     Route: 065

REACTIONS (3)
  - Convulsion [Recovered/Resolved]
  - Drug abuse [Recovered/Resolved]
  - Drug interaction [Recovered/Resolved]
